FAERS Safety Report 15299401 (Version 1)
Quarter: 2018Q3

REPORT INFORMATION
  Report Type: Spontaneous
  Country: DE (occurrence: DE)
  Receive Date: 20180821
  Receipt Date: 20180821
  Transmission Date: 20181010
  Serious: Yes (Death, Life-Threatening, Other)
  Sender: FDA-Public Use
  Company Number: DE-TEVA-2018-DE-944463

PATIENT
  Age: 63 Year
  Sex: Female

DRUGS (8)
  1. STEROFUNDIN [Concomitant]
     Active Substance: CALCIUM CHLORIDE\MAGNESIUM CHLORIDE\POTASSIUM CHLORIDE\SODIUM ACETATE\SODIUM CHLORIDE
     Dosage: 1500 ML DAILY;
     Route: 048
     Dates: start: 20180414, end: 20180416
  2. NOVALGIN (METAMIZOLE SODIUM) [Concomitant]
     Active Substance: METAMIZOLE SODIUM
     Dosage: 3000 MILLIGRAM DAILY;
     Route: 048
     Dates: start: 20180415, end: 20180416
  3. KALINOR [Concomitant]
     Dosage: 1 DOSAGE FORMS DAILY;
     Dates: start: 20180413
  4. CLEXANE [Concomitant]
     Active Substance: ENOXAPARIN SODIUM
     Dosage: .4 IU (INTERNATIONAL UNIT) DAILY;
     Route: 058
     Dates: start: 20180413, end: 20180416
  5. NOVALGIN (METAMIZOLE SODIUM) [Concomitant]
     Active Substance: METAMIZOLE SODIUM
     Dosage: 4000 MILLIGRAM DAILY;
     Route: 048
     Dates: start: 20180413, end: 20180414
  6. RISPERIDONE. [Suspect]
     Active Substance: RISPERIDONE
     Dosage: 4 MILLIGRAM DAILY;
     Route: 048
     Dates: start: 20180414, end: 20180416
  7. VITAMIN B1 [Concomitant]
     Active Substance: THIAMINE HYDROCHLORIDE
     Dosage: 600 MILLIGRAM DAILY;
     Dates: start: 20180416
  8. DIAZEPAM. [Suspect]
     Active Substance: DIAZEPAM
     Dosage: 15 MILLIGRAM DAILY;
     Route: 065
     Dates: start: 20180413, end: 20180416

REACTIONS (1)
  - Death [Fatal]

NARRATIVE: CASE EVENT DATE: 20180417
